FAERS Safety Report 8144435-2 (Version None)
Quarter: 2012Q1

REPORT INFORMATION
  Report Type: 
  Country: None (occurrence: None)
  Receive Date: 20120217
  Receipt Date: 20120209
  Transmission Date: 20120608
  Serious: Yes (Other)
  Sender: FDA-Public Use
  Company Number: AU-ROCHE-1040818

PATIENT
  Sex: Female

DRUGS (1)
  1. LUCENTIS [Suspect]
     Indication: MACULAR DEGENERATION
     Route: 042

REACTIONS (2)
  - POLYPOIDAL CHOROIDAL VASCULOPATHY [None]
  - THERAPEUTIC RESPONSE DECREASED [None]
